FAERS Safety Report 6164700-8 (Version None)
Quarter: 2009Q2

REPORT INFORMATION
  Report Type: 
  Country: None (occurrence: None)
  Receive Date: 20090423
  Receipt Date: 20090415
  Transmission Date: 20091009
  Serious: Yes (Hospitalization)
  Sender: FDA-Public Use
  Company Number: US-ROCHE-627640

PATIENT
  Sex: Male
  Weight: 65.8 kg

DRUGS (2)
  1. CAPECITABINE [Suspect]
     Route: 048
     Dates: start: 20090326, end: 20090327
  2. FLUOROURACIL [Concomitant]
     Dosage: FORM: INFUSION

REACTIONS (3)
  - DIARRHOEA [None]
  - TRANSFUSION [None]
  - VOMITING [None]
